FAERS Safety Report 9421480 (Version 1)
Quarter: 2013Q3

REPORT INFORMATION
  Report Type: Spontaneous
  Country: JP (occurrence: JP)
  Receive Date: 20130726
  Receipt Date: 20130726
  Transmission Date: 20140515
  Serious: Yes (Hospitalization)
  Sender: FDA-Public Use
  Company Number: 2013SP005155

PATIENT
  Age: 46 Year
  Sex: Female

DRUGS (11)
  1. HALOPERIDOL DECANOATE [Suspect]
     Indication: SCHIZOPHRENIA
  2. BENIDIPINE [Concomitant]
     Indication: PRODUCT USED FOR UNKNOWN INDICATION
  3. TIZANIDINE [Concomitant]
     Indication: PRODUCT USED FOR UNKNOWN INDICATION
  4. FLUDIAZEPAM [Concomitant]
     Indication: PRODUCT USED FOR UNKNOWN INDICATION
  5. ASPIRIN [Concomitant]
     Indication: PRODUCT USED FOR UNKNOWN INDICATION
  6. SENNOSIDE A [Concomitant]
     Indication: PRODUCT USED FOR UNKNOWN INDICATION
  7. CHLORPROMAZINE [Concomitant]
     Indication: PRODUCT USED FOR UNKNOWN INDICATION
  8. PROMETHAZINE [Concomitant]
     Indication: PRODUCT USED FOR UNKNOWN INDICATION
  9. BIPERIDEN [Concomitant]
     Indication: PRODUCT USED FOR UNKNOWN INDICATION
  10. FLUNITRAZEPAM [Concomitant]
     Indication: PRODUCT USED FOR UNKNOWN INDICATION
  11. DIAZEPAM [Concomitant]
     Indication: PRODUCT USED FOR UNKNOWN INDICATION

REACTIONS (5)
  - Long QT syndrome [Recovered/Resolved]
  - Torsade de pointes [Recovering/Resolving]
  - Ventricular fibrillation [Recovered/Resolved]
  - Altered state of consciousness [Recovered/Resolved]
  - Water intoxication [Recovered/Resolved]
